FAERS Safety Report 20721610 (Version 2)
Quarter: 2022Q2

REPORT INFORMATION
  Report Type: Spontaneous
  Country: CA (occurrence: CA)
  Receive Date: 20220418
  Receipt Date: 20220519
  Transmission Date: 20220721
  Serious: Yes (Other)
  Sender: FDA-Public Use
  Company Number: CA-PFIZER INC-2020011027

PATIENT

DRUGS (6)
  1. IBUPROFEN [Suspect]
     Active Substance: IBUPROFEN
     Indication: Pyrexia
     Dosage: 180 MG
     Route: 048
  2. IBUPROFEN [Suspect]
     Active Substance: IBUPROFEN
     Indication: Drug provocation test
     Dosage: 20 MG
     Route: 048
  3. CHILDRENS IBUPROFEN [Suspect]
     Active Substance: IBUPROFEN
     Indication: Allergy test
     Dosage: UNK
     Route: 048
  4. CHILDRENS IBUPROFEN [Suspect]
     Active Substance: IBUPROFEN
     Indication: Pyrexia
     Dosage: UNK
     Route: 048
  5. CHILDRENS IBUPROFEN [Suspect]
     Active Substance: IBUPROFEN
     Dosage: UNK
     Route: 048
  6. CEFPROZIL [Suspect]
     Active Substance: CEFPROZIL
     Indication: Antibiotic therapy
     Dosage: UNK
     Route: 065

REACTIONS (4)
  - Anaphylactic reaction [Recovered/Resolved]
  - Drug hypersensitivity [Recovered/Resolved]
  - Type I hypersensitivity [Recovered/Resolved]
  - Product use in unapproved indication [Recovered/Resolved]
